FAERS Safety Report 7675227-6 (Version None)
Quarter: 2011Q3

REPORT INFORMATION
  Report Type: 
  Country: None (occurrence: None)
  Receive Date: 20110810
  Receipt Date: 20110810
  Transmission Date: 20111222
  Serious: Yes (Other)
  Sender: FDA-Public Use
  Company Number: None

PATIENT
  Age: 45 Year
  Sex: Female
  Weight: 56.699 kg

DRUGS (1)
  1. SUPREP BOWEL PREP KIT [Suspect]
     Indication: BOWEL PREPARATION
     Dosage: 17.5G/3.13G/1.6G PER 6 OUNCES
     Route: 048
     Dates: start: 20110805, end: 20110805

REACTIONS (8)
  - BEDRIDDEN [None]
  - RETCHING [None]
  - DIARRHOEA [None]
  - ABDOMINAL DISTENSION [None]
  - FATIGUE [None]
  - MUSCLE SPASMS [None]
  - HEADACHE [None]
  - NAUSEA [None]
